FAERS Safety Report 15012736 (Version 1)
Quarter: 2018Q2

REPORT INFORMATION
  Report Type: Spontaneous
  Country: FR (occurrence: FR)
  Receive Date: 20180614
  Receipt Date: 20180614
  Transmission Date: 20180711
  Serious: Yes (Other)
  Sender: FDA-Public Use
  Company Number: FR-TEVA-2018-FR-907616

PATIENT
  Age: 47 Year
  Sex: Female
  Weight: 48 kg

DRUGS (5)
  1. AMOXICILLINE PANPHARMA [Suspect]
     Active Substance: AMOXICILLIN
     Indication: URINARY TRACT INFECTION
     Dosage: 3 GRAM DAILY;
     Route: 042
     Dates: start: 20180411, end: 20180414
  2. SERESTA 10 MG, COMPRIM? [Concomitant]
     Active Substance: OXAZEPAM
     Indication: ANXIETY
     Dosage: 30 MILLIGRAM DAILY;
     Route: 048
     Dates: start: 20180403
  3. AMLODIPINE [Suspect]
     Active Substance: AMLODIPINE BESYLATE
     Dosage: 5 MILLIGRAM DAILY;
     Route: 048
     Dates: start: 20180412, end: 20180414
  4. LOVENOX [Suspect]
     Active Substance: ENOXAPARIN SODIUM
     Dosage: 4000 IU (INTERNATIONAL UNIT) DAILY;
     Route: 058
     Dates: start: 20180413
  5. CEFTRIAXONE BASE [Suspect]
     Active Substance: CEFTRIAXONE
     Indication: URINARY TRACT INFECTION
     Route: 042
     Dates: start: 20180409, end: 20180411

REACTIONS (3)
  - Rash macular [Recovering/Resolving]
  - Eosinophilia [Recovering/Resolving]
  - Pyrexia [Recovered/Resolved]

NARRATIVE: CASE EVENT DATE: 20180415
